FAERS Safety Report 5038614-0 (Version None)
Quarter: 2006Q2

REPORT INFORMATION
  Report Type: 
  Country: None (occurrence: None)
  Receive Date: 20060623
  Receipt Date: 20060608
  Transmission Date: 20061013
  Serious: Yes (Hospitalization)
  Sender: FDA-Public Use
  Company Number: 2006052639

PATIENT
  Age: 80 Year
  Sex: Female
  Weight: 64 kg

DRUGS (10)
  1. UNASYN [Suspect]
     Indication: PROPHYLAXIS
     Dosage: 3 GRAM (1.5 GRAM, 2 IN 1 D), INTRAVENOUS
     Route: 042
     Dates: start: 20060224, end: 20060224
  2. ROPIVACINE HYDROCHLORIDE  (ROPIVACAINE HYDROCHLORIDE) [Concomitant]
  3. MORPHINE [Concomitant]
  4. EUGLUCON (GLIBENCLAMIDE) [Concomitant]
  5. MIDAZOLAM HCL [Concomitant]
  6. PINORUBIN (PIRARUBICIN) [Concomitant]
  7. PROPOFOL [Concomitant]
  8. XYLOCAINE [Concomitant]
  9. CARBOCAIN (MEPIVACAINE HYDROCHLORIDE) [Concomitant]
  10. MARCAINE [Concomitant]

REACTIONS (1)
  - ACUTE GENERALISED EXANTHEMATOUS PUSTULOSIS [None]
